FAERS Safety Report 9832831 (Version 2)
Quarter: 2014Q1

REPORT INFORMATION
  Report Type: Spontaneous
  Country: FR (occurrence: FR)
  Receive Date: 20140121
  Receipt Date: 20140212
  Transmission Date: 20141002
  Serious: Yes (Hospitalization)
  Sender: FDA-Public Use
  Company Number: FR-B.I. PHARMACEUTICALS,INC./RIDGEFIELD-2014-BI-02384FF

PATIENT
  Age: 63 Year
  Sex: Male
  Weight: 95 kg

DRUGS (8)
  1. PRADAXA [Suspect]
     Indication: ATRIAL FIBRILLATION
     Dosage: 220 MG
     Dates: start: 201308
  2. PRADAXA [Suspect]
     Dosage: 300 MG
     Dates: start: 2013
  3. INEGY [Concomitant]
  4. LASILIX 40 [Concomitant]
  5. COKENZEN [Concomitant]
  6. CARDENSIEL 3.75 [Concomitant]
  7. DIGOXINE [Concomitant]
  8. SEROPLEX [Concomitant]

REACTIONS (1)
  - Phlebitis [Unknown]
